FAERS Safety Report 9344302 (Version 3)
Quarter: 2013Q3

REPORT INFORMATION
  Report Type: Spontaneous
  Country: US (occurrence: US)
  Receive Date: 20130612
  Receipt Date: 20130930
  Transmission Date: 20140515
  Serious: No
  Sender: FDA-Public Use
  Company Number: US-ASTRAZENECA-2013SE38750

PATIENT
  Age: 85 Year
  Sex: Female
  Weight: 95.3 kg

DRUGS (8)
  1. BRILINTA [Suspect]
     Indication: MYOCARDIAL INFARCTION
     Route: 048
     Dates: start: 201111
  2. BUMETANIE [Concomitant]
     Indication: POLYURIA
     Route: 048
     Dates: start: 201111
  3. CARVEDILOL [Concomitant]
     Indication: HYPERTENSION
     Route: 048
     Dates: start: 201111
  4. HYDRALAZINE [Concomitant]
     Indication: HYPERTENSION
     Route: 048
     Dates: start: 201111
  5. ASPIRIN [Concomitant]
     Indication: CARDIAC DISORDER
     Route: 048
     Dates: start: 201111
  6. GENERIC ZOCOR [Concomitant]
     Indication: BLOOD CHOLESTEROL INCREASED
     Route: 048
  7. FISH OIL [Concomitant]
     Indication: CARDIAC DISORDER
     Dosage: 1000 UNITS, TWO TIMES A DAY
     Route: 048
     Dates: start: 201111
  8. PLAVIX [Concomitant]

REACTIONS (9)
  - Skin hyperpigmentation [Unknown]
  - Nasal discomfort [Recovered/Resolved]
  - Hypoacusis [Unknown]
  - Mass [Unknown]
  - Otorrhoea [Unknown]
  - Scratch [Unknown]
  - Contusion [Recovered/Resolved]
  - Ulcer haemorrhage [Recovered/Resolved]
  - Ear haemorrhage [Not Recovered/Not Resolved]
